FAERS Safety Report 10652262 (Version 6)
Quarter: 2015Q2

REPORT INFORMATION
  Report Type: Spontaneous
  Country: US (occurrence: US)
  Receive Date: 20141215
  Receipt Date: 20150403
  Transmission Date: 20150821
  Serious: Yes (Hospitalization, Other)
  Sender: FDA-Public Use
  Company Number: US-MERCK-1412USA007227

PATIENT
  Sex: Female
  Weight: 90.7 kg

DRUGS (3)
  1. JANUVIA [Suspect]
     Active Substance: SITAGLIPTIN PHOSPHATE
     Indication: TYPE 2 DIABETES MELLITUS
     Dosage: 50 MG, QD
     Route: 048
     Dates: start: 20090625, end: 20091216
  2. JANUVIA [Suspect]
     Active Substance: SITAGLIPTIN PHOSPHATE
     Dosage: 100 MG, QD
     Route: 048
     Dates: start: 20091209, end: 20121020
  3. JANUVIA [Suspect]
     Active Substance: SITAGLIPTIN PHOSPHATE
     Dosage: 50 MG, QD
     Route: 048
     Dates: start: 20100326

REACTIONS (29)
  - Pancreaticoduodenectomy [Recovering/Resolving]
  - Metastases to lung [Unknown]
  - Anaemia of chronic disease [Not Recovered/Not Resolved]
  - Breast lump removal [Unknown]
  - Cholelithiasis [Unknown]
  - Pancreatic carcinoma metastatic [Unknown]
  - Anaemia postoperative [Unknown]
  - VIIth nerve paralysis [Recovering/Resolving]
  - Melaena [Unknown]
  - Drug intolerance [Unknown]
  - Klebsiella bacteraemia [Unknown]
  - Acute kidney injury [Recovering/Resolving]
  - Nausea [Recovered/Resolved]
  - Metastases to lymph nodes [Unknown]
  - Abnormal loss of weight [Recovered/Resolved]
  - Hyponatraemia [Recovering/Resolving]
  - Hyperkalaemia [Recovered/Resolved]
  - Dysarthria [Unknown]
  - Jaundice cholestatic [Recovered/Resolved]
  - Hiatus hernia [Unknown]
  - Tremor [Unknown]
  - Pancreatic neuroendocrine tumour [Unknown]
  - Invasive ductal breast carcinoma [Unknown]
  - Cholecystitis chronic [Not Recovered/Not Resolved]
  - Abdominal pain [Unknown]
  - Vomiting [Recovered/Resolved]
  - Cholecystitis acute [Recovered/Resolved]
  - Lymphadenectomy [Unknown]
  - Stomatitis [Unknown]

NARRATIVE: CASE EVENT DATE: 20100203
